FAERS Safety Report 8407789-5 (Version None)
Quarter: 2012Q2

REPORT INFORMATION
  Report Type: 
  Country: None (occurrence: None)
  Receive Date: 20120604
  Receipt Date: 20120531
  Transmission Date: 20120825
  Serious: Yes (Hospitalization)
  Sender: FDA-Public Use
  Company Number: FR-GLAXOSMITHKLINE-B0783004A

PATIENT
  Sex: Female
  Weight: 50 kg

DRUGS (10)
  1. LEVOTHYROXINE SODIUM [Concomitant]
     Dosage: 100MCG PER DAY
  2. MODOPAR [Concomitant]
     Indication: PARKINSON'S DISEASE
     Route: 065
  3. RIFAMYCINE [Concomitant]
     Indication: CONJUNCTIVITIS BACTERIAL
     Route: 065
     Dates: start: 20100120
  4. XALATAN [Concomitant]
  5. PAROXETINE HYDROCHLORIDE [Concomitant]
     Dosage: 30MG PER DAY
     Route: 065
     Dates: start: 20091001
  6. LAMICTAL [Suspect]
     Indication: BIPOLAR DISORDER
     Route: 065
     Dates: start: 20100127, end: 20100223
  7. POLYETHYLENE GLYCOL [Concomitant]
  8. TOPIRAMATE [Concomitant]
     Route: 065
     Dates: start: 20091001
  9. PROCTOLOG [Concomitant]
  10. ROCEPHIN [Concomitant]
     Indication: URINARY TRACT INFECTION BACTERIAL
     Route: 058
     Dates: start: 20100121

REACTIONS (10)
  - CORNEAL ABSCESS [None]
  - DRUG RASH WITH EOSINOPHILIA AND SYSTEMIC SYMPTOMS [None]
  - HEPATOCELLULAR INJURY [None]
  - RASH MACULO-PAPULAR [None]
  - PURULENT DISCHARGE [None]
  - CHOLESTASIS [None]
  - EOSINOPHILIA [None]
  - PURPURA [None]
  - BLEPHARITIS [None]
  - RASH PRURITIC [None]
